FAERS Safety Report 12761866 (Version 1)
Quarter: 2016Q3

REPORT INFORMATION
  Report Type: Spontaneous
  Country: US (occurrence: US)
  Receive Date: 20160920
  Receipt Date: 20160920
  Transmission Date: 20161109
  Serious: Yes (Other)
  Sender: FDA-Public Use
  Company Number: US-TEVA-690459USA

PATIENT
  Sex: Female

DRUGS (1)
  1. AMOXICILLIN. [Suspect]
     Active Substance: AMOXICILLIN
     Indication: TOOTH DISORDER
     Dosage: 1500 MILLIGRAM DAILY;
     Route: 048
     Dates: start: 2016, end: 2016

REACTIONS (10)
  - Lip swelling [Unknown]
  - Paraesthesia oral [Unknown]
  - Dry mouth [Unknown]
  - Chest pain [Unknown]
  - Nausea [Unknown]
  - Diarrhoea [Unknown]
  - Chromaturia [Unknown]
  - Renal pain [Unknown]
  - Dysphonia [Unknown]
  - Hypoaesthesia oral [Not Recovered/Not Resolved]

NARRATIVE: CASE EVENT DATE: 2016
